FAERS Safety Report 10252050 (Version 3)
Quarter: 2014Q2

REPORT INFORMATION
  Report Type: Report from Study
  Country: CA (occurrence: CA)
  Receive Date: 20140623
  Receipt Date: 20140630
  Transmission Date: 20141212
  Serious: Yes (Hospitalization)
  Sender: FDA-Public Use
  Company Number: PHHY2014CA014083

PATIENT
  Age: 55 Year
  Sex: Male

DRUGS (2)
  1. SANDOSTATIN (OCTREOTIDE ACETATE) [Suspect]
     Indication: PANCREATIC FISTULA
     Dosage: 150 UG, TID
     Route: 058
     Dates: start: 20140127, end: 201402
  2. SANDOSTATIN LAR [Suspect]
     Indication: PANCREATIC FISTULA
     Dosage: 20 MG, ONCE A MONTH
     Route: 030
     Dates: start: 20140221

REACTIONS (4)
  - Abdominal abscess [Unknown]
  - Injection site rash [Unknown]
  - Urticaria [Unknown]
  - Pruritus [Unknown]
